FAERS Safety Report 9069204 (Version 1)
Quarter: 2013Q1

REPORT INFORMATION
  Report Type: Report from Study
  Country: US (occurrence: US)
  Receive Date: 20130131
  Receipt Date: 20130131
  Transmission Date: 20140127
  Serious: No
  Sender: FDA-Public Use
  Company Number: US-ABBOTT-12P-163-0983700-00

PATIENT
  Age: 53 None
  Sex: Female

DRUGS (13)
  1. HUMIRA [Suspect]
     Indication: ANKYLOSING SPONDYLITIS
     Route: 058
     Dates: start: 201208
  2. HUMIRA [Suspect]
     Route: 058
     Dates: start: 20121012
  3. CYMBALTA [Concomitant]
     Indication: PAIN
     Dosage: 60 MG DAILY
  4. CYMBALTA [Concomitant]
     Indication: DEPRESSION
  5. SINGULAIR [Concomitant]
     Indication: ASTHMA
     Dosage: DAILY
  6. DULERA [Concomitant]
     Indication: ASTHMA
     Dosage: 2 PUFFS DAILY
  7. RESCUE INHALER [Concomitant]
     Indication: ASTHMA
  8. LAMICTAL [Concomitant]
     Indication: MIGRAINE
     Dosage: 200 MG DAILY
  9. DIOVAN HCT [Concomitant]
     Indication: BLOOD PRESSURE
  10. ALPRAZOLAM [Concomitant]
     Indication: ANXIETY
     Dosage: IN AM AND HS
  11. ALPRAZOLAM [Concomitant]
     Indication: INSOMNIA
  12. POTASSIUM CHLORIDE [Concomitant]
     Indication: PRODUCT USED FOR UNKNOWN INDICATION
     Dosage: 10 MEQ DAILY
  13. AMBIEN [Concomitant]
     Indication: INSOMNIA
     Dosage: 12.5 MG AT HS

REACTIONS (7)
  - Drug dose omission [Unknown]
  - Wrong technique in drug usage process [Unknown]
  - Urinary tract infection [Unknown]
  - Upper respiratory tract infection [Recovered/Resolved]
  - Upper respiratory tract infection [Unknown]
  - Injection site pain [Unknown]
  - Ankylosing spondylitis [Recovering/Resolving]
